FAERS Safety Report 6064749-X (Version None)
Quarter: 2009Q1

REPORT INFORMATION
  Report Type: 
  Country: None (occurrence: None)
  Receive Date: 20090204
  Receipt Date: 20081003
  Transmission Date: 20090719
  Serious: No
  Sender: FDA-Public Use
  Company Number: A0750481A

PATIENT
  Sex: Male

DRUGS (1)
  1. ARIXTRA [Suspect]

REACTIONS (3)
  - RASH [None]
  - RASH VESICULAR [None]
  - SKIN LESION [None]
